FAERS Safety Report 8078762-4 (Version None)
Quarter: 2012Q1

REPORT INFORMATION
  Report Type: 
  Country: None (occurrence: None)
  Receive Date: 20120125
  Receipt Date: 20120116
  Transmission Date: 20120608
  Serious: Yes (Other)
  Sender: FDA-Public Use
  Company Number: TPA2012A00323

PATIENT
  Age: 74 Year
  Sex: Male

DRUGS (9)
  1. LOVASTATIN [Concomitant]
  2. ACTOS [Suspect]
     Dosage: 15 MG, PER ORAL
     Route: 048
     Dates: start: 20050415, end: 20080213
  3. OMEPRAZOLE [Concomitant]
  4. FUROSEMIDE [Concomitant]
  5. METFORMIN HCL [Concomitant]
  6. METOPROLOL ER (METOPROLOL) [Concomitant]
  7. VALIUM [Concomitant]
  8. HYDROCODONE BITARTRATE [Concomitant]
  9. FLOMAX [Concomitant]

REACTIONS (1)
  - BLADDER CANCER [None]
